FAERS Safety Report 9608462 (Version 3)
Quarter: 2013Q4

REPORT INFORMATION
  Report Type: Spontaneous
  Country: US (occurrence: US)
  Receive Date: 20131009
  Receipt Date: 20131203
  Transmission Date: 20140711
  Serious: Yes (Life-Threatening, Hospitalization)
  Sender: FDA-Public Use
  Company Number: US-BAYER-2013-121096

PATIENT
  Age: 32 Year
  Sex: Female
  Weight: 53.52 kg

DRUGS (7)
  1. MIRENA [Suspect]
     Indication: CONTRACEPTION
     Dosage: 20 MCG/24HR, CONT
     Route: 015
     Dates: start: 20130529, end: 20130605
  2. MIRENA [Suspect]
     Indication: CONTRACEPTION
     Dosage: 20 MCG/24HR, CONT
     Route: 015
     Dates: start: 200611, end: 201206
  3. IBUPROFEN [Concomitant]
     Dosage: UNK
     Dates: start: 20130201
  4. PROMETRIUM [Concomitant]
     Dosage: UNK
     Dates: start: 20130201
  5. FERROUS SULFATE [Concomitant]
     Dosage: UNK
     Dates: start: 20130201
  6. VICODIN [Concomitant]
  7. MOTRIN [Concomitant]

REACTIONS (14)
  - Uterine perforation [None]
  - Abdominal pain [None]
  - Injury [None]
  - General physical health deterioration [None]
  - Device issue [None]
  - Abdominal injury [None]
  - Uterine fibrosis [None]
  - Emotional distress [None]
  - Anxiety [None]
  - Anhedonia [None]
  - Depression [None]
  - Insomnia [None]
  - Lactation disorder [None]
  - Fear [None]
